FAERS Safety Report 11645737 (Version 1)
Quarter: 2015Q4

REPORT INFORMATION
  Report Type: Spontaneous
  Country: US (occurrence: US)
  Receive Date: 20151020
  Receipt Date: 20151020
  Transmission Date: 20160304
  Serious: No
  Sender: FDA-Public Use
  Company Number: US-GLAXOSMITHKLINE-US2015146099

PATIENT
  Age: 24 Year
  Sex: Male

DRUGS (1)
  1. POTIGA [Suspect]
     Active Substance: EZOGABINE
     Indication: EPILEPSY
     Dates: start: 20151013

REACTIONS (1)
  - Wrong technique in product usage process [Unknown]
